FAERS Safety Report 6999875-1 (Version None)
Quarter: 2010Q3

REPORT INFORMATION
  Report Type: 
  Country: None (occurrence: None)
  Receive Date: 20100920
  Receipt Date: 20070702
  Transmission Date: 20110219
  Serious: Yes (Other)
  Sender: FDA-Public Use
  Company Number: US-ASTRAZENECA-2006UW08018

PATIENT
  Age: 16605 Day
  Sex: Male
  Weight: 99.8 kg

DRUGS (3)
  1. SEROQUEL [Suspect]
     Indication: NERVOUS SYSTEM DISORDER
     Route: 048
     Dates: start: 20040109
  2. SEROQUEL [Suspect]
     Route: 048
     Dates: start: 20040319, end: 20040419
  3. BUSPAR [Concomitant]
     Dosage: 15 - 60 MG
     Dates: start: 20020717

REACTIONS (4)
  - ILL-DEFINED DISORDER [None]
  - PANCREATITIS [None]
  - PANCREATITIS ACUTE [None]
  - TYPE 2 DIABETES MELLITUS [None]
